FAERS Safety Report 18287715 (Version 1)
Quarter: 2020Q3

REPORT INFORMATION
  Report Type: Spontaneous
  Country: ES (occurrence: ES)
  Receive Date: 20200921
  Receipt Date: 20200921
  Transmission Date: 20201103
  Serious: Yes (Other)
  Sender: FDA-Public Use
  Company Number: ES-TEVA-2020-ES-1828610

PATIENT
  Age: 77 Year
  Sex: Female

DRUGS (1)
  1. ATENOLOL 50 MG 30 COMPRIMIDOS [Suspect]
     Active Substance: ATENOLOL
     Indication: HYPERTENSION
     Dates: start: 20200715, end: 20200715

REACTIONS (4)
  - Dizziness [Unknown]
  - Syncope [Unknown]
  - Heart rate decreased [Unknown]
  - Balance disorder [Unknown]

NARRATIVE: CASE EVENT DATE: 20200715
